FAERS Safety Report 9781387 (Version 1)
Quarter: 2013Q4

REPORT INFORMATION
  Report Type: Spontaneous
  Country: US (occurrence: None)
  Receive Date: 20131223
  Receipt Date: 20131223
  Transmission Date: 20140711
  Serious: Yes (Hospitalization)
  Sender: FDA-Public Use
  Company Number: None

PATIENT
  Age: 66 Year
  Sex: Male
  Weight: 122.7 kg

DRUGS (1)
  1. AMIODARONE [Suspect]
     Indication: ATRIAL FIBRILLATION
     Route: 048
     Dates: start: 20130930, end: 20131112

REACTIONS (8)
  - Fatigue [None]
  - Urine output decreased [None]
  - Renal failure acute [None]
  - Azotaemia [None]
  - Dialysis [None]
  - Mental status changes [None]
  - Confusional state [None]
  - Hypernatraemia [None]
